FAERS Safety Report 20609477 (Version 1)
Quarter: 2022Q1

REPORT INFORMATION
  Report Type: Spontaneous
  Country: GB (occurrence: GB)
  Receive Date: 20220318
  Receipt Date: 20220318
  Transmission Date: 20220423
  Serious: Yes (Other)
  Sender: FDA-Public Use
  Company Number: GB-MHRA-EMIS-8634-805af35e-0713-4b74-8d74-c879e64f7556

PATIENT
  Age: 63 Year
  Sex: Male
  Weight: 82.6 kg

DRUGS (1)
  1. AMLODIPINE [Suspect]
     Active Substance: AMLODIPINE BESYLATE
     Indication: Product used for unknown indication
     Dosage: UNK (ONE TO BE TAKEN EACH DAY)
     Route: 065
     Dates: start: 20201210, end: 20220303

REACTIONS (1)
  - Gingival disorder [Unknown]
